FAERS Safety Report 6877517-3 (Version None)
Quarter: 2010Q3

REPORT INFORMATION
  Report Type: 
  Country: None (occurrence: None)
  Receive Date: 20100727
  Receipt Date: 20091209
  Transmission Date: 20110219
  Serious: No
  Sender: FDA-Public Use
  Company Number: US-ABBOTT-09P-163-0614171-00

PATIENT
  Sex: Female
  Weight: 93.07 kg

DRUGS (5)
  1. SYNTHROID [Suspect]
     Indication: BLOOD THYROID STIMULATING HORMONE INCREASED
     Dates: start: 20080101, end: 20091206
  2. SYNTHROID [Suspect]
     Dates: start: 20091207, end: 20091207
  3. SYNTHROID [Suspect]
     Dates: start: 20091208
  4. PREVACID [Concomitant]
     Indication: PRODUCT USED FOR UNKNOWN INDICATION
  5. CALCIUM [Concomitant]
     Indication: PRODUCT USED FOR UNKNOWN INDICATION

REACTIONS (6)
  - ABDOMINAL PAIN [None]
  - BLOOD THYROID STIMULATING HORMONE INCREASED [None]
  - DIARRHOEA [None]
  - INCORRECT DRUG ADMINISTRATION DURATION [None]
  - MUSCLE SPASMS [None]
  - MYALGIA [None]
